FAERS Safety Report 7557086-5 (Version None)
Quarter: 2011Q2

REPORT INFORMATION
  Report Type: 
  Country: None (occurrence: None)
  Receive Date: 20110620
  Receipt Date: 20110610
  Transmission Date: 20111010
  Serious: Yes (Other)
  Sender: FDA-Public Use
  Company Number: US-PFIZER INC-2011127709

PATIENT
  Sex: Female

DRUGS (2)
  1. PROTONIX [Suspect]
     Indication: GASTROOESOPHAGEAL REFLUX DISEASE
     Dosage: 40 MG, UNK
     Route: 042
     Dates: start: 20110604, end: 20110608
  2. PANTOPRAZOLE [Suspect]
     Indication: GASTROOESOPHAGEAL REFLUX DISEASE
     Dosage: 40 MG, UNK
     Dates: start: 20110604, end: 20110608

REACTIONS (7)
  - RHINORRHOEA [None]
  - ANAPHYLACTIC REACTION [None]
  - ANOSMIA [None]
  - RASH [None]
  - PRURITUS [None]
  - BRONCHOSPASM [None]
  - AGEUSIA [None]
